FAERS Safety Report 6039733-2 (Version None)
Quarter: 2009Q1

REPORT INFORMATION
  Report Type: 
  Country: None (occurrence: None)
  Receive Date: 20090116
  Receipt Date: 20090112
  Transmission Date: 20090719
  Serious: Yes (Life-Threatening, Hospitalization)
  Sender: FDA-Public Use
  Company Number: PHHY2009DE01260

PATIENT

DRUGS (16)
  1. METOPROLOL TARTRATE [Suspect]
     Indication: HYPERTENSION
     Dosage: 95 MG, QD
     Route: 048
  2. METHIZOL [Suspect]
     Indication: HYPERTHYROIDISM
     Dosage: 5 MG, QD
     Route: 048
  3. ACETYLSALICYLIC ACID SRT [Concomitant]
     Indication: CORONARY ARTERY DISEASE
     Dosage: 100 MG, QD
     Route: 048
  4. ACTRAPID PENFILL [Concomitant]
     Indication: TYPE 2 DIABETES MELLITUS
     Dosage: 6 IU, TID
     Route: 058
  5. ARLEVERT [Concomitant]
     Indication: DIZZINESS
     Dosage: 1 DF(20/40 MG), TID
     Route: 048
  6. CALCIUM D3 ^STADA^ [Concomitant]
     Indication: OSTEOPOROSIS
     Dosage: 1 DF(600/4 MG), BID
     Route: 048
  7. FENTANYL [Concomitant]
     Indication: MUSCULOSKELETAL PAIN
     Dosage: 12 UG, QD
     Route: 062
  8. LACTULOSE [Concomitant]
     Indication: CONSTIPATION
     Route: 048
  9. NOVALGIN                                /SCH/ [Concomitant]
     Indication: MUSCULOSKELETAL PAIN
     Dosage: 750 MG, TID
     Route: 048
  10. PANTOZOL [Concomitant]
     Indication: PROPHYLAXIS AGAINST GASTROINTESTINAL ULCER
     Dosage: 40 MG, QD
     Route: 048
  11. PIRACETAM [Concomitant]
     Indication: DEMENTIA
     Dosage: 1200 MG, BID
     Route: 048
  12. PIRETANIDE [Concomitant]
     Indication: HYPERTENSION
     Dosage: 6 MG, TID
     Route: 048
  13. PRAVASTATIN [Concomitant]
     Indication: CORONARY ARTERY DISEASE
     Dosage: 20 MG, QD
     Route: 048
  14. PROTAPHAN PENFILL [Concomitant]
     Indication: TYPE 2 DIABETES MELLITUS
     Dosage: 6 IU, QD
     Route: 058
  15. RAMIPRIL [Concomitant]
     Indication: HYPERTENSION
     Dosage: 10 MG, BID
     Route: 048
  16. TORSEMIDE [Concomitant]
     Indication: RENAL IMPAIRMENT
     Dosage: 10 MG, QD
     Route: 048

REACTIONS (6)
  - ACTIVATED PARTIAL THROMBOPLASTIN TIME SHORTENED [None]
  - BLOOD GLUCOSE INCREASED [None]
  - BLOOD SODIUM INCREASED [None]
  - BRADYCARDIA [None]
  - C-REACTIVE PROTEIN INCREASED [None]
  - HYPOTHYROIDISM [None]
